FAERS Safety Report 10062189 (Version 2)
Quarter: 2014Q2

REPORT INFORMATION
  Report Type: Spontaneous
  Country: DE (occurrence: DE)
  Receive Date: 20140407
  Receipt Date: 20140623
  Transmission Date: 20141212
  Serious: Yes (Hospitalization, Other)
  Sender: FDA-Public Use
  Company Number: DE-JNJFOC-20140402550

PATIENT
  Age: 87 Year
  Sex: Female
  Weight: 65 kg

DRUGS (11)
  1. XARELTO [Suspect]
     Indication: CEREBROVASCULAR ACCIDENT PROPHYLAXIS
     Route: 048
     Dates: start: 20131119, end: 20131209
  2. XARELTO [Suspect]
     Indication: ATRIAL FIBRILLATION
     Route: 048
     Dates: start: 20131119, end: 20131209
  3. TORASEMID [Concomitant]
     Route: 065
  4. ATORVASTATIN [Concomitant]
     Route: 065
  5. OMEPRAZOLE [Concomitant]
     Route: 065
  6. TILIDIN N [Concomitant]
     Route: 065
  7. NOVAMINSULFON [Concomitant]
     Route: 065
  8. LYRICA [Concomitant]
     Route: 065
  9. DICLOFENAC SODIUM [Concomitant]
     Route: 065
  10. METOCLOPRAMID [Concomitant]
     Route: 065
  11. FENTANYL [Concomitant]
     Route: 065

REACTIONS (5)
  - Urinary retention [Unknown]
  - Renal failure acute [Recovered/Resolved]
  - Spinal column stenosis [Recovered/Resolved]
  - Micturition disorder [Recovered/Resolved]
  - Lymphoedema [Recovered/Resolved]
